FAERS Safety Report 24354220 (Version 1)
Quarter: 2024Q3

REPORT INFORMATION
  Report Type: Spontaneous
  Country: US (occurrence: US)
  Receive Date: 20240923
  Receipt Date: 20240923
  Transmission Date: 20241016
  Serious: No
  Sender: PFIZER
  Company Number: US-PFIZER INC-202400191371

PATIENT
  Age: 50 Year
  Sex: Female

DRUGS (4)
  1. XELJANZ [Suspect]
     Active Substance: TOFACITINIB CITRATE
     Indication: Rheumatoid arthritis
     Dosage: 5 MG, ALTERNATE DAY( ONCE EVERY OTHER DAY IN THE EVENING)
     Route: 048
     Dates: start: 202405
  2. XELJANZ [Suspect]
     Active Substance: TOFACITINIB CITRATE
     Dosage: 5 MG TWO TIMES A DAY ALTERNATING WITH 5MG ONCE DAILY
     Route: 048
  3. XELJANZ XR [Suspect]
     Active Substance: TOFACITINIB CITRATE
     Indication: Rheumatoid arthritis
     Dosage: 11 MG, ALTERNATE DAY( 1 TABLET BY MOUTH EVERY OTHER DAY)
     Route: 048
     Dates: start: 202405
  4. XELJANZ XR [Suspect]
     Active Substance: TOFACITINIB CITRATE
     Dosage: 11 MG, 1X/DAY
     Route: 048

REACTIONS (4)
  - Off label use [Unknown]
  - Product use issue [Unknown]
  - Blood test abnormal [Unknown]
  - Pain [Unknown]

NARRATIVE: CASE EVENT DATE: 20240501
